FAERS Safety Report 9585877 (Version 1)
Quarter: 2013Q4

REPORT INFORMATION
  Report Type: Spontaneous
  Country: US (occurrence: None)
  Receive Date: 20131002
  Receipt Date: 20131002
  Transmission Date: 20140711
  Serious: Yes (Life-Threatening, Hospitalization)
  Sender: FDA-Public Use
  Company Number: None

PATIENT
  Age: 66 Year
  Sex: Female

DRUGS (11)
  1. AMIODARONE [Suspect]
     Indication: ATRIAL FIBRILLATION
     Route: 048
  2. ASA [Concomitant]
  3. CARVEDILOL [Concomitant]
  4. FISH OIL [Concomitant]
  5. FOLATE [Concomitant]
  6. ATORVASTATIN [Concomitant]
  7. DIGOXIN [Concomitant]
  8. MIDODRINE [Concomitant]
  9. MULTIVITAMIN [Concomitant]
  10. ASCORBIC ACID [Concomitant]
  11. WARFARIN [Concomitant]

REACTIONS (2)
  - Orthostatic intolerance [None]
  - Hyperthyroidism [None]
